FAERS Safety Report 9458044 (Version 2)
Quarter: 2013Q4

REPORT INFORMATION
  Report Type: Spontaneous
  Country: FR (occurrence: FR)
  Receive Date: 20130814
  Receipt Date: 20131107
  Transmission Date: 20140711
  Serious: Yes (Death, Other)
  Sender: FDA-Public Use
  Company Number: FR-009507513-1308FRA003022

PATIENT
  Age: 46 Year
  Sex: Female
  Weight: 92 kg

DRUGS (2)
  1. JANUMET [Suspect]
     Indication: PRODUCT USED FOR UNKNOWN INDICATION
     Dosage: 1 DF, QD
     Route: 048
     Dates: start: 20130627
  2. COSOPT, COLLYRE EN SOLUTION RECIPIENT UNIDOSE [Suspect]
     Indication: PRODUCT USED FOR UNKNOWN INDICATION
     Dosage: UNK
     Route: 047
     Dates: start: 20130628

REACTIONS (5)
  - Cardiac arrest [Fatal]
  - Weight decreased [Unknown]
  - Chest pain [Not Recovered/Not Resolved]
  - Cardiac enzymes increased [Unknown]
  - Cyanosis [Not Recovered/Not Resolved]
